FAERS Safety Report 4780352-3 (Version None)
Quarter: 2005Q3

REPORT INFORMATION
  Report Type: 
  Country: None (occurrence: None)
  Receive Date: 20050926
  Receipt Date: 20050926
  Transmission Date: 20060218
  Serious: Yes (Hospitalization)
  Sender: FDA-Public Use
  Company Number: None

PATIENT
  Age: 53 Year
  Sex: Male
  Weight: 65.5 kg

DRUGS (24)
  1. DOCETAXEL [Suspect]
     Indication: METASTASIS
     Dosage: 60 MG/M2, Q21D, IV
     Route: 042
     Dates: start: 20050512, end: 20050913
  2. DOCETAXEL [Suspect]
     Indication: NEOPLASM MALIGNANT
     Dosage: 60 MG/M2, Q21D, IV
     Route: 042
     Dates: start: 20050512, end: 20050913
  3. DOCETAXEL [Suspect]
     Indication: SQUAMOUS CELL CARCINOMA
     Dosage: 60 MG/M2, Q21D, IV
     Route: 042
     Dates: start: 20050512, end: 20050913
  4. OXALIPLATIN [Suspect]
     Indication: METASTASIS
     Dosage: 130 MG/M2, Q21D, IV
     Route: 042
     Dates: start: 20050512, end: 20050913
  5. OXALIPLATIN [Suspect]
     Indication: NEOPLASM MALIGNANT
     Dosage: 130 MG/M2, Q21D, IV
     Route: 042
     Dates: start: 20050512, end: 20050913
  6. OXALIPLATIN [Suspect]
     Indication: SQUAMOUS CELL CARCINOMA
     Dosage: 130 MG/M2, Q21D, IV
     Route: 042
     Dates: start: 20050512, end: 20050913
  7. OXALIPLATIN [Suspect]
  8. ALBUTEROL [Concomitant]
  9. ARTIFICIAL SALIVA [Concomitant]
  10. BUPROPION [Concomitant]
  11. CIPROFLOXACIN [Concomitant]
  12. CIPROFLOXACIN [Concomitant]
  13. CYANOCOBALAMIN [Concomitant]
  14. DEXAMETHASONE [Concomitant]
  15. FENTANYL [Concomitant]
  16. FLUNISOLIDE [Concomitant]
  17. FOLIC ACID [Concomitant]
  18. HYDROPHOR [Concomitant]
  19. IPRATROPIUM BROMIDE [Concomitant]
  20. OXYCODONE ELIXIR [Concomitant]
  21. SODIUM CHLORIDE [Concomitant]
  22. TERAZOSIN HCL [Concomitant]
  23. THIAMINE [Concomitant]
  24. TUBE FEEDINGS [Concomitant]

REACTIONS (2)
  - FEBRILE NEUTROPENIA [None]
  - HAEMOPTYSIS [None]
